FAERS Safety Report 21439007 (Version 1)
Quarter: 2022Q4

REPORT INFORMATION
  Report Type: Spontaneous
  Country: US (occurrence: US)
  Receive Date: 20221011
  Receipt Date: 20221011
  Transmission Date: 20230112
  Serious: Yes (Hospitalization, Other)
  Sender: FDA-Public Use
  Company Number: US-Accord-280832

PATIENT
  Age: 46 Year
  Sex: Female

DRUGS (1)
  1. FINGOLIMOD [Suspect]
     Active Substance: FINGOLIMOD
     Indication: Relapsing multiple sclerosis
     Dates: start: 201006, end: 20220328

REACTIONS (4)
  - Chest wall mass [Recovered/Resolved]
  - Cryptococcosis [Recovered/Resolved]
  - Osteomyelitis [Unknown]
  - Lymphopenia [Recovered/Resolved]
